FAERS Safety Report 22347517 (Version 2)
Quarter: 2023Q2

REPORT INFORMATION
  Report Type: Spontaneous
  Country: CA (occurrence: CA)
  Receive Date: 20230521
  Receipt Date: 20230601
  Transmission Date: 20230721
  Serious: Yes (Hospitalization, Other)
  Sender: FDA-Public Use
  Company Number: CA-BAXTER-2023BAX021843

PATIENT
  Age: 44 Year
  Sex: Female

DRUGS (1)
  1. DIANEAL LOW CALCIUM PERITONEAL DIALYSIS SOLUTION WITH DEXTROSE [Suspect]
     Active Substance: CALCIUM CHLORIDE\DEXTROSE\MAGNESIUM CHLORIDE\SODIUM CHLORIDE\SODIUM LACTATE
     Route: 033

REACTIONS (12)
  - Escherichia infection [Not Recovered/Not Resolved]
  - Asthenia [Not Recovered/Not Resolved]
  - Near death experience [Unknown]
  - Hypophagia [Unknown]
  - Peritonitis bacterial [Recovered/Resolved]
  - Pyrexia [Recovered/Resolved]
  - Abdominal pain [Recovered/Resolved]
  - Nausea [Unknown]
  - Vomiting [Unknown]
  - Hyponatraemia [Recovered/Resolved]
  - Blood sodium decreased [Unknown]
  - Peritonitis [Unknown]

NARRATIVE: CASE EVENT DATE: 20230304
